FAERS Safety Report 17565593 (Version 2)
Quarter: 2022Q1

REPORT INFORMATION
  Report Type: Spontaneous
  Country: US (occurrence: US)
  Receive Date: 20200320
  Receipt Date: 20220301
  Transmission Date: 20220423
  Serious: No
  Sender: FDA-Public Use
  Company Number: US-PFIZER INC-2020121019

PATIENT
  Age: 78 Year
  Sex: Female
  Weight: 53.52 kg

DRUGS (1)
  1. XELJANZ XR [Suspect]
     Active Substance: TOFACITINIB CITRATE
     Indication: Psoriatic arthropathy
     Dosage: 11 MG, 1X/DAY
     Route: 048

REACTIONS (3)
  - Alopecia [Unknown]
  - COVID-19 [Unknown]
  - Malaise [Unknown]
